FAERS Safety Report 14803719 (Version 1)
Quarter: 2018Q2

REPORT INFORMATION
  Report Type: Spontaneous
  Country: IR (occurrence: IR)
  Receive Date: 20180425
  Receipt Date: 20180425
  Transmission Date: 20180711
  Serious: Yes (Death, Hospitalization, Other)
  Sender: FDA-Public Use
  Company Number: IR-ASTELLAS-2018US019719

PATIENT
  Age: 42 Year
  Sex: Male

DRUGS (5)
  1. ITRACONAZOLE. [Suspect]
     Active Substance: ITRACONAZOLE
     Route: 048
  2. ITRACONAZOLE. [Suspect]
     Active Substance: ITRACONAZOLE
     Indication: GASTROINTESTINAL FUNGAL INFECTION
     Route: 048
  3. VORICONAZOLE. [Suspect]
     Active Substance: VORICONAZOLE
     Route: 042
  4. VORICONAZOLE. [Suspect]
     Active Substance: VORICONAZOLE
     Indication: GASTROINTESTINAL FUNGAL INFECTION
     Dosage: 400 MG, EVERY 12 HOURS (FOR FIRST 24 HOURS)
     Route: 042
  5. AMBISOME [Suspect]
     Active Substance: AMPHOTERICIN B
     Indication: GASTROINTESTINAL FUNGAL INFECTION
     Route: 042

REACTIONS (1)
  - Drug ineffective [Fatal]
